FAERS Safety Report 22001179 (Version 2)
Quarter: 2023Q2

REPORT INFORMATION
  Report Type: Spontaneous
  Country: CA (occurrence: CA)
  Receive Date: 20230216
  Receipt Date: 20230412
  Transmission Date: 20230722
  Serious: Yes (Hospitalization)
  Sender: FDA-Public Use
  Company Number: CA-VIIV HEALTHCARE LIMITED-CA2023AMR001990

PATIENT

DRUGS (27)
  1. CABENUVA [Suspect]
     Active Substance: CABOTEGRAVIR\RILPIVIRINE
     Indication: HIV infection
     Dosage: UNK UNK, Z, EVERY 2 MONTHS, 600/900MG, 1ST DOSE
     Route: 030
     Dates: start: 20220710
  2. CABENUVA [Suspect]
     Active Substance: CABOTEGRAVIR\RILPIVIRINE
  3. CABENUVA [Suspect]
     Active Substance: CABOTEGRAVIR\RILPIVIRINE
  4. ABILIFY [Suspect]
     Active Substance: ARIPIPRAZOLE
     Indication: Psychotic disorder
     Dosage: 400 MG, Z, EVERY 30 DAYS
     Route: 030
  5. SINEQUAN [Suspect]
     Active Substance: DOXEPIN HYDROCHLORIDE
     Indication: Affective disorder
     Dosage: 10 MG, Z: QHS
     Route: 048
  6. SINEQUAN [Suspect]
     Active Substance: DOXEPIN HYDROCHLORIDE
     Indication: Sleep disorder
  7. TOPIRAMATE [Suspect]
     Active Substance: TOPIRAMATE
     Indication: Anxiety
     Dosage: 25 MG, Z:QHS
     Route: 048
  8. METHAMPHETAMINE [Suspect]
     Active Substance: METHAMPHETAMINE
     Indication: Product used for unknown indication
     Dosage: UNK
  9. TRAZODONE [Suspect]
     Active Substance: TRAZODONE HYDROCHLORIDE
     Indication: Sleep disorder
     Dosage: 50 MG, Z:QHS
     Route: 048
  10. JARDIANCE [Suspect]
     Active Substance: EMPAGLIFLOZIN
     Indication: Diabetes mellitus
     Dosage: 25 MG, Z: QAM
     Route: 048
  11. METFORMIN [Suspect]
     Active Substance: METFORMIN HYDROCHLORIDE
     Indication: Diabetes mellitus
     Dosage: 500 MG, BID
     Route: 048
  12. GLICLAZIDE [Suspect]
     Active Substance: GLICLAZIDE
     Indication: Product used for unknown indication
     Dosage: 60 MG, BID
  13. GLICLAZIDE [Suspect]
     Active Substance: GLICLAZIDE
     Dosage: 30 MG, BID
     Route: 048
  14. DIVALPROEX SODIUM [Suspect]
     Active Substance: DIVALPROEX SODIUM
     Indication: Product used for unknown indication
     Dosage: 500 MG, BID
     Route: 048
  15. AMITRIPTYLINE [Suspect]
     Active Substance: AMITRIPTYLINE
     Indication: Affective disorder
     Dosage: 10 MG, Z:QHS
     Route: 048
  16. AMITRIPTYLINE [Suspect]
     Active Substance: AMITRIPTYLINE
     Indication: Sleep disorder
  17. ROSUVASTATIN [Suspect]
     Active Substance: ROSUVASTATIN
     Indication: Blood cholesterol abnormal
     Dosage: 10 MG, AT SUPPER
     Route: 048
  18. JANUVIA [Suspect]
     Active Substance: SITAGLIPTIN PHOSPHATE
     Indication: Diabetes mellitus
     Dosage: 100 MG, Z:QAM
     Route: 048
     Dates: end: 202301
  19. TRANDOLAPRIL [Suspect]
     Active Substance: TRANDOLAPRIL
     Indication: Blood pressure abnormal
     Dosage: 1 MG AT SUPPER
     Route: 048
  20. OZEMPIC [Suspect]
     Active Substance: SEMAGLUTIDE
     Indication: Diabetes mellitus
     Dosage: 1 MG, WE,
     Route: 058
     Dates: start: 202211
  21. OZEMPIC [Suspect]
     Active Substance: SEMAGLUTIDE
     Indication: Weight decreased
  22. TOUJEO [Suspect]
     Active Substance: INSULIN GLARGINE
     Indication: Diabetes mellitus
     Dosage: UNK UNK, QD, 25 U, ONLY PICKED UP THIS TIME
     Route: 058
     Dates: start: 20220427
  23. APIDRA [Suspect]
     Active Substance: INSULIN GLULISINE
     Indication: Diabetes mellitus
     Dosage: UNK UNK, BID, 4-6U, ONLY PICKED UP THIS TIME
     Route: 058
     Dates: start: 202201
  24. COCAINE [Suspect]
     Active Substance: COCAINE
     Indication: Product used for unknown indication
     Dosage: UNK
  25. TRIUMEQ [Concomitant]
     Active Substance: ABACAVIR SULFATE\DOLUTEGRAVIR SODIUM\LAMIVUDINE
     Indication: HIV infection
     Dosage: UNK
     Dates: start: 2015, end: 20220613
  26. VOCABRIA [Concomitant]
     Active Substance: CABOTEGRAVIR SODIUM
     Indication: HIV infection
     Dosage: 30 MG
     Route: 048
  27. EDURANT [Concomitant]
     Active Substance: RILPIVIRINE HYDROCHLORIDE
     Indication: HIV infection
     Dosage: 25 MG
     Route: 048

REACTIONS (5)
  - Psychotic disorder [Recovered/Resolved]
  - Aggression [Recovered/Resolved]
  - Substance use [Unknown]
  - Product dose omission issue [Unknown]
  - Inappropriate schedule of product administration [Unknown]
